FAERS Safety Report 9264756 (Version 2)
Quarter: 2013Q2

REPORT INFORMATION
  Report Type: Report from Study
  Country: CZ (occurrence: CZ)
  Receive Date: 20130501
  Receipt Date: 20130605
  Transmission Date: 20140414
  Serious: Yes (Hospitalization)
  Sender: FDA-Public Use
  Company Number: CZ-ROCHE-1174128

PATIENT
  Age: 61 Year
  Sex: Male
  Weight: 90 kg

DRUGS (19)
  1. TOCILIZUMAB [Suspect]
     Indication: RHEUMATOID ARTHRITIS
     Dosage: LAST DOSE PRIOR TO SAE: 01/NOV/2012
     Route: 042
     Dates: start: 20120614
  2. HELIDES [Concomitant]
     Indication: GASTRIC ULCER
     Route: 048
     Dates: start: 20120510
  3. NOLPAZA [Concomitant]
     Indication: GASTRIC ULCER
     Route: 048
     Dates: start: 2010, end: 20120509
  4. SIOFOR [Concomitant]
     Indication: TYPE 2 DIABETES MELLITUS
     Route: 048
     Dates: start: 2007
  5. OLTAR [Concomitant]
     Indication: TYPE 2 DIABETES MELLITUS
     Route: 048
     Dates: start: 2007
  6. ZOREM [Concomitant]
     Indication: HYPERTENSION
     Route: 048
     Dates: start: 201112
  7. BETALOC [Concomitant]
     Indication: HYPERTENSION
     Route: 048
     Dates: start: 2007
  8. TENAXUM [Concomitant]
     Indication: HYPERTENSION
     Route: 048
     Dates: start: 2007
  9. PRESTARIUM NEO FORTE [Concomitant]
     Route: 048
     Dates: start: 2008
  10. RHEFLUIN [Concomitant]
     Indication: HYPERTENSION
     Route: 048
     Dates: start: 2008
  11. EBRANTIL [Concomitant]
     Indication: THROMBOTIC STROKE
     Route: 048
     Dates: start: 201112
  12. AGGRENOX [Concomitant]
     Indication: THROMBOTIC STROKE
     Route: 048
     Dates: start: 201112
  13. ASENTRA [Concomitant]
     Indication: DEPRESSION
     Route: 048
     Dates: start: 201201
  14. METHOTREXATE [Concomitant]
     Indication: RHEUMATOID ARTHRITIS
     Route: 048
     Dates: start: 200912, end: 201112
  15. METHOTREXATE [Concomitant]
     Route: 048
     Dates: start: 201112, end: 20120315
  16. METHOTREXATE [Concomitant]
     Route: 048
     Dates: start: 20120316, end: 20121101
  17. METHOTREXATE [Concomitant]
     Route: 048
     Dates: start: 20121102
  18. ACIDUM FOLICUM [Concomitant]
     Indication: PROPHYLAXIS
     Route: 048
     Dates: start: 200912
  19. TRAMAL [Concomitant]
     Indication: RHEUMATOID ARTHRITIS
     Route: 048
     Dates: start: 20121102

REACTIONS (1)
  - Otitis externa [Recovered/Resolved]
